FAERS Safety Report 6336104-6 (Version None)
Quarter: 2009Q3

REPORT INFORMATION
  Report Type: 
  Country: None (occurrence: None)
  Receive Date: 20090901
  Receipt Date: 20090824
  Transmission Date: 20100115
  Serious: Yes (Other)
  Sender: FDA-Public Use
  Company Number: DE-JNJFOC-20090801481

PATIENT
  Sex: Male

DRUGS (3)
  1. RISPERDAL [Suspect]
     Dosage: 1-0-0
     Route: 048
  2. RISPERDAL [Suspect]
     Indication: SCHIZOPHRENIA, PARANOID TYPE
     Route: 048
  3. SEROQUEL [Concomitant]
     Route: 065

REACTIONS (2)
  - ASTHMA [None]
  - NOCTURNAL DYSPNOEA [None]
